FAERS Safety Report 21846058 (Version 1)
Quarter: 2023Q1

REPORT INFORMATION
  Report Type: Spontaneous
  Country: US (occurrence: US)
  Receive Date: 20230111
  Receipt Date: 20230111
  Transmission Date: 20230418
  Serious: No
  Sender: FDA-Public Use
  Company Number: US-SA-SAC20230106000877

PATIENT
  Sex: Female

DRUGS (10)
  1. DUPIXENT [Suspect]
     Active Substance: DUPILUMAB
     Indication: Therapeutic aspiration
     Dosage: 300 MG, QOW
     Route: 058
  2. CETIRIZINE [Concomitant]
     Active Substance: CETIRIZINE HYDROCHLORIDE
     Dosage: 150MG
  3. DOXEPIN [Concomitant]
     Active Substance: DOXEPIN
     Indication: Dermatitis atopic
     Dosage: 150MG
  4. IRON [Concomitant]
     Active Substance: IRON
     Dosage: 10MG
  5. LIPITOR [Concomitant]
     Active Substance: ATORVASTATIN CALCIUM
     Dosage: 20MG
  6. PRILOSEC [Concomitant]
     Active Substance: OMEPRAZOLE MAGNESIUM
     Dosage: 30MG
  7. PROCARDIA [Concomitant]
     Active Substance: NIFEDIPINE
     Dosage: 320MG
  8. VALSARTAN [Concomitant]
     Active Substance: VALSARTAN
     Dosage: 320MG
  9. VITAMIN D NOS [Concomitant]
     Active Substance: VITAMIN D NOS
     Dosage: 4MG
  10. ZANAFLEX [Concomitant]
     Active Substance: TIZANIDINE HYDROCHLORIDE
     Dosage: 4MG

REACTIONS (6)
  - Plantar fasciitis [Unknown]
  - Weight decreased [Unknown]
  - Hypotension [Unknown]
  - Sinusitis [Unknown]
  - Dizziness [Unknown]
  - Product use in unapproved indication [Unknown]
